FAERS Safety Report 9623080 (Version 2)
Quarter: 2013Q4

REPORT INFORMATION
  Report Type: Spontaneous
  Country: FR (occurrence: FR)
  Receive Date: 20131015
  Receipt Date: 20131015
  Transmission Date: 20140711
  Serious: Yes (Other)
  Sender: FDA-Public Use
  Company Number: FR-009507513-1307FRA007149

PATIENT
  Age: 38 Year
  Sex: Female
  Weight: 70 kg

DRUGS (1)
  1. NEXPLANON [Suspect]
     Dosage: UNK
     Route: 059
     Dates: start: 20130528, end: 20130711

REACTIONS (2)
  - Abortion spontaneous [Unknown]
  - Unintended pregnancy [Recovered/Resolved]
